FAERS Safety Report 9459608 (Version 1)
Quarter: 2013Q3

REPORT INFORMATION
  Report Type: Spontaneous
  Country: US (occurrence: US)
  Receive Date: 20130815
  Receipt Date: 20130815
  Transmission Date: 20140515
  Serious: No
  Sender: FDA-Public Use
  Company Number: US-COVIDIEN/TYCO HEALTHCARE/MALLINCKRODT-T201303805

PATIENT
  Age: 87 Year
  Sex: Female

DRUGS (2)
  1. FENTANYL TRANSDERMAL SYSTEM [Suspect]
     Indication: GASTRITIS
     Dosage: 50 UG/HR, ONE Q 72 HRS
     Route: 062
     Dates: start: 201305
  2. FENTANYL [Concomitant]
     Indication: GASTRITIS
     Dosage: 50 UG/HR, ONE PATCH Q 72 HRS
     Route: 062
     Dates: end: 201305

REACTIONS (5)
  - Abdominal distension [Not Recovered/Not Resolved]
  - Mobility decreased [Not Recovered/Not Resolved]
  - Drug effect increased [Not Recovered/Not Resolved]
  - Dyspnoea [Not Recovered/Not Resolved]
  - Product quality issue [Unknown]
